FAERS Safety Report 5928462-9 (Version None)
Quarter: 2008Q4

REPORT INFORMATION
  Report Type: 
  Country: None (occurrence: None)
  Receive Date: 20081023
  Receipt Date: 20081014
  Transmission Date: 20090506
  Serious: Yes (Hospitalization)
  Sender: FDA-Public Use
  Company Number: BN-JNJCH-2008052289

PATIENT
  Age: 72 Year
  Sex: Male

DRUGS (4)
  1. ACETYLSALICYLIC ACID SRT [Suspect]
     Indication: DRUG USE FOR UNKNOWN INDICATION
     Dosage: TEXT:UNSPECIFIED
     Route: 065
  2. CLOPIDOGREL [Suspect]
     Indication: DRUG USE FOR UNKNOWN INDICATION
     Dosage: TEXT:UNSPECIFIED
     Route: 065
  3. ATORVASTATIN CALCIUM [Suspect]
     Indication: DRUG USE FOR UNKNOWN INDICATION
     Dosage: TEXT:UNSPECIFIED
     Route: 065
  4. OMEPRAZOLE [Suspect]
     Indication: DRUG USE FOR UNKNOWN INDICATION
     Dosage: TEXT:UNSPECIFIED
     Route: 065

REACTIONS (10)
  - ANAEMIA [None]
  - ARRHYTHMIA [None]
  - CHEST PAIN [None]
  - HAEMATEMESIS [None]
  - HAEMATOMA [None]
  - HYPERHIDROSIS [None]
  - HYPOTENSION [None]
  - OESOPHAGEAL VARICES HAEMORRHAGE [None]
  - PLEURAL EFFUSION [None]
  - RETCHING [None]
